FAERS Safety Report 8479932-3 (Version None)
Quarter: 2012Q2

REPORT INFORMATION
  Report Type: 
  Country: None (occurrence: None)
  Receive Date: 20120629
  Receipt Date: 20120622
  Transmission Date: 20120825
  Serious: Yes (Other)
  Sender: FDA-Public Use
  Company Number: FR-UCBSA-060357

PATIENT
  Age: 33 Year
  Sex: Female

DRUGS (4)
  1. NEXIUM [Concomitant]
     Dosage: DAILY DOSE :20 MG
  2. XYZAL [Suspect]
     Indication: RHINITIS ALLERGIC
     Dosage: DAILY DOSE :5 MG
     Route: 048
     Dates: start: 20110615, end: 20120618
  3. JASMINE [Concomitant]
  4. SINGULAIR [Concomitant]
     Dosage: DAILY DOSE :10 MG
     Dates: start: 20120101

REACTIONS (2)
  - INCREASED APPETITE [None]
  - WEIGHT INCREASED [None]
